FAERS Safety Report 8473541-8 (Version None)
Quarter: 2012Q2

REPORT INFORMATION
  Report Type: 
  Country: None (occurrence: None)
  Receive Date: 20120622
  Receipt Date: 20120622
  Transmission Date: 20120825
  Serious: Yes (Disabling, Other)
  Sender: FDA-Public Use
  Company Number: None

PATIENT
  Sex: Female

DRUGS (7)
  1. CALCIUM [Concomitant]
  2. FISH OIL [Concomitant]
  3. FIBER [Concomitant]
  4. VITAMIN B COMPLEX CAP [Concomitant]
  5. LISINOPRIL AND HYDROCHLOROTHIAZIDE [Suspect]
     Indication: HYPERTENSION
     Dosage: 20 MG, ONCE A DAY
     Dates: start: 20110316, end: 20120316
  6. VITAMIN E [Concomitant]
  7. VITAMIN D [Concomitant]

REACTIONS (2)
  - COUGH [None]
  - NEUROPATHY PERIPHERAL [None]
